FAERS Safety Report 8190517-9 (Version None)
Quarter: 2012Q1

REPORT INFORMATION
  Report Type: 
  Country: None (occurrence: None)
  Receive Date: 20120221
  Receipt Date: 20111216
  Transmission Date: 20120608
  Serious: No
  Sender: FDA-Public Use
  Company Number: 1000026348

PATIENT
  Age: 54 Year
  Sex: Female

DRUGS (8)
  1. VIIBRYD [Suspect]
     Indication: DEPRESSION
     Dosage: SEE IMAGE
     Route: 048
     Dates: start: 20111201
  2. VIIBRYD [Suspect]
     Indication: DEPRESSION
     Dosage: SEE IMAGE
     Route: 048
     Dates: end: 20111201
  3. VIIBRYD [Suspect]
     Indication: DEPRESSION
     Dosage: SEE IMAGE
     Route: 048
     Dates: start: 20110901
  4. TRAZODONE (TRAZODONE) (TRAZODONE) [Concomitant]
  5. ZYPREXA [Concomitant]
  6. MIRTAZAPINE [Concomitant]
  7. ZOLOFT [Concomitant]
  8. KLONOPIN [Concomitant]

REACTIONS (1)
  - FACE OEDEMA [None]
